FAERS Safety Report 7372141-0 (Version None)
Quarter: 2011Q1

REPORT INFORMATION
  Report Type: 
  Country: None (occurrence: None)
  Receive Date: 20110324
  Receipt Date: 20110317
  Transmission Date: 20110831
  Serious: Yes (Hospitalization)
  Sender: FDA-Public Use
  Company Number: IT-ROCHE-764822

PATIENT
  Sex: Female
  Weight: 59 kg

DRUGS (1)
  1. BEVACIZUMAB [Suspect]
     Dosage: DOSE FORM: VIAL, TEMPORARILY INTERRUPTED. LAST DOSE PRIOR TO SAE : 15 FEB 2011
     Route: 042
     Dates: start: 20100423, end: 20110215

REACTIONS (1)
  - TACHYCARDIA [None]
